FAERS Safety Report 5440489-2 (Version None)
Quarter: 2007Q3

REPORT INFORMATION
  Report Type: 
  Country: None (occurrence: None)
  Receive Date: 20070831
  Receipt Date: 20070822
  Transmission Date: 20080115
  Serious: Yes (Other)
  Sender: FDA-Public Use
  Company Number: FR-ROCHE-505418

PATIENT
  Age: 35 Year
  Sex: Female

DRUGS (3)
  1. PEGASYS [Suspect]
     Indication: SYSTEMIC MASTOCYTOSIS
     Route: 058
  2. PEGASYS [Suspect]
     Dosage: DOSAGE WAS DECREASED.
     Route: 058
  3. PEGASYS [Suspect]
     Dosage: DOSAGE WAS REDUCED.
     Route: 058

REACTIONS (2)
  - ALOPECIA [None]
  - INFERTILITY [None]
